FAERS Safety Report 6003139-2 (Version None)
Quarter: 2008Q4

REPORT INFORMATION
  Report Type: 
  Country: None (occurrence: None)
  Receive Date: 20081212
  Receipt Date: 20081212
  Transmission Date: 20090506
  Serious: No
  Sender: FDA-Public Use
  Company Number: None

PATIENT
  Sex: Female
  Weight: 49 kg

DRUGS (3)
  1. TEMOZOLOMIDE [Suspect]
     Dosage: 3255 MG
  2. COMPAZINE [Concomitant]
  3. KYTRIL [Concomitant]

REACTIONS (1)
  - CD4 LYMPHOCYTES ABNORMAL [None]
